FAERS Safety Report 22088605 (Version 2)
Quarter: 2023Q2

REPORT INFORMATION
  Report Type: Spontaneous
  Country: US (occurrence: US)
  Receive Date: 20230313
  Receipt Date: 20230418
  Transmission Date: 20230722
  Serious: Yes (Hospitalization, Other)
  Sender: FDA-Public Use
  Company Number: US-MYLANLABS-2023M1025203

PATIENT
  Age: 83 Year
  Sex: Male
  Weight: 63.5 kg

DRUGS (2)
  1. PREGABALIN [Suspect]
     Active Substance: PREGABALIN
     Indication: Restless legs syndrome
     Dosage: 25 MILLIGRAM (2 TABLETS IN EVENING)
     Route: 065
     Dates: start: 20221224
  2. PREGABALIN [Suspect]
     Active Substance: PREGABALIN
     Dosage: 25 MILLIGRAM (1 TABLETS IN MORNING)
     Route: 065
     Dates: start: 20221225

REACTIONS (8)
  - Fall [Not Recovered/Not Resolved]
  - Weight abnormal [Not Recovered/Not Resolved]
  - Spinal cord disorder [Unknown]
  - Intervertebral disc compression [Not Recovered/Not Resolved]
  - Somnolence [Unknown]
  - Off label use [Unknown]
  - Drug ineffective for unapproved indication [Unknown]
  - Dizziness [Unknown]

NARRATIVE: CASE EVENT DATE: 20221224
